FAERS Safety Report 4265696-6 (Version None)
Quarter: 2004Q1

REPORT INFORMATION
  Report Type: 
  Country: None (occurrence: None)
  Receive Date: 20040106
  Receipt Date: 20031224
  Transmission Date: 20041129
  Serious: Yes (Death)
  Sender: FDA-Public Use
  Company Number: US-JNJFOC-20031205261

PATIENT
  Age: 71 Year
  Sex: Female

DRUGS (15)
  1. INFLIXIMAB (INFLIXIMAB, RECOMBINANT) LYOPHILIZED POWDER [Suspect]
     Indication: RHEUMATOID ARTHRITIS
     Dates: start: 20010626, end: 20011101
  2. FOSAMAX [Concomitant]
  3. PREDNISONE [Concomitant]
  4. FOLIC ACID [Concomitant]
  5. MONOPRIL [Concomitant]
  6. COREG [Concomitant]
  7. VERAPAMIL [Concomitant]
  8. DIOVAN [Concomitant]
  9. FUROSEMIDE [Concomitant]
  10. XANAX [Concomitant]
  11. ZYRTEC [Concomitant]
  12. NORVASC [Concomitant]
  13. AXID [Concomitant]
  14. CALCIUM (CALCIUM) [Concomitant]
  15. MULTIVITAMIN (MULTIVITAMINS) [Concomitant]

REACTIONS (3)
  - GASTROINTESTINAL DISORDER [None]
  - LUNG DISORDER [None]
  - SKIN FISSURES [None]
